FAERS Safety Report 8886820 (Version 10)
Quarter: 2013Q2

REPORT INFORMATION
  Report Type: Report from Study
  Country: CA (occurrence: CA)
  Receive Date: 20121105
  Receipt Date: 20130610
  Transmission Date: 20140414
  Serious: Yes (Other)
  Sender: FDA-Public Use
  Company Number: CA-ROCHE-1101728

PATIENT
  Age: 77 Year
  Sex: Female
  Weight: 61.2 kg

DRUGS (10)
  1. ACTEMRA [Suspect]
     Indication: RHEUMATOID ARTHRITIS
     Route: 042
     Dates: start: 20120302, end: 20130521
  2. ACTEMRA [Suspect]
     Route: 042
     Dates: start: 20120720
  3. ACTEMRA [Suspect]
     Route: 042
     Dates: start: 20120817
  4. METHOTREXATE [Suspect]
     Indication: PRODUCT USED FOR UNKNOWN INDICATION
     Route: 065
     Dates: start: 2012
  5. COVERSYL PLUS [Concomitant]
     Indication: HYPERTENSION
     Route: 048
  6. ALENDRONATE [Concomitant]
     Route: 048
  7. PREDNISONE [Concomitant]
  8. PLAQUENIL [Concomitant]
  9. ZOPICLONE [Concomitant]
     Route: 065
  10. CLONAZEPAM [Concomitant]

REACTIONS (20)
  - Joint effusion [Recovered/Resolved]
  - Fall [Recovered/Resolved]
  - Clavicle fracture [Not Recovered/Not Resolved]
  - Rheumatoid arthritis [Recovering/Resolving]
  - Drug ineffective [Unknown]
  - Arthralgia [Recovering/Resolving]
  - Tendonitis [Recovering/Resolving]
  - Diarrhoea [Recovered/Resolved]
  - Nausea [Recovered/Resolved]
  - Fatigue [Not Recovered/Not Resolved]
  - Weight decreased [Unknown]
  - Asthenia [Unknown]
  - Palpitations [Unknown]
  - Pain in extremity [Not Recovered/Not Resolved]
  - Local swelling [Recovering/Resolving]
  - Hypersensitivity [Recovered/Resolved]
  - Pruritus [Recovered/Resolved]
  - Cough [Not Recovered/Not Resolved]
  - Urinary tract infection [Recovered/Resolved]
  - Weight increased [Not Recovered/Not Resolved]
